FAERS Safety Report 25892940 (Version 1)
Quarter: 2025Q4

REPORT INFORMATION
  Report Type: Spontaneous
  Country: JP (occurrence: JP)
  Receive Date: 20251007
  Receipt Date: 20251007
  Transmission Date: 20260117
  Serious: Yes (Hospitalization, Other)
  Sender: SANDOZ
  Company Number: JP-SANDOZ INC.-SDZ2024JP071598

PATIENT
  Age: 9 Decade
  Sex: Male

DRUGS (6)
  1. ACETAMINOPHEN\TRAMADOL [Suspect]
     Active Substance: ACETAMINOPHEN\TRAMADOL
     Indication: Pain
     Dosage: 4 TABLETS DAILY
     Route: 048
  2. ACETAMINOPHEN\TRAMADOL [Suspect]
     Active Substance: ACETAMINOPHEN\TRAMADOL
     Dosage: 6 TABLETS DAILY
     Route: 048
  3. ACETAMINOPHEN\TRAMADOL [Suspect]
     Active Substance: ACETAMINOPHEN\TRAMADOL
     Dosage: GRADUALLY INCREASE THE ORAL DOSE UP TO THE OUTPATIENT LEVEL
     Route: 048
  4. ACETAMINOPHEN\TRAMADOL [Suspect]
     Active Substance: ACETAMINOPHEN\TRAMADOL
     Dosage: THE SAME DOSAGE AS BEFORE
     Route: 048
  5. ACETAMINOPHEN\TRAMADOL [Suspect]
     Active Substance: ACETAMINOPHEN\TRAMADOL
     Dosage: UNK
     Route: 048
  6. ACETAMINOPHEN\TRAMADOL [Suspect]
     Active Substance: ACETAMINOPHEN\TRAMADOL
     Dosage: UNK
     Route: 048

REACTIONS (3)
  - Depressed level of consciousness [Recovering/Resolving]
  - Suicide attempt [Unknown]
  - Intentional overdose [Unknown]
